FAERS Safety Report 9814281 (Version 2)
Quarter: 2014Q1

REPORT INFORMATION
  Report Type: Spontaneous
  Country: CA (occurrence: CA)
  Receive Date: 20140113
  Receipt Date: 20140213
  Transmission Date: 20141002
  Serious: Yes (Hospitalization, Other)
  Sender: FDA-Public Use
  Company Number: PHHY2014CA002055

PATIENT
  Age: 61 Year
  Sex: Male

DRUGS (4)
  1. VALSARTAN+HYDROCHLOROTHIAZIDE SANDOZ [Suspect]
     Dosage: 1 DF, QD
     Route: 048
     Dates: end: 20140104
  2. XALATAN [Concomitant]
  3. RAPAFLO [Concomitant]
     Dosage: 8 MG, QD
  4. NAPROXEN [Concomitant]
     Dosage: 1125 MG, PRN

REACTIONS (1)
  - Ventricular extrasystoles [Recovering/Resolving]
